FAERS Safety Report 18243250 (Version 1)
Quarter: 2020Q3

REPORT INFORMATION
  Report Type: Spontaneous
  Country: CA (occurrence: CA)
  Receive Date: 20200908
  Receipt Date: 20200908
  Transmission Date: 20201103
  Serious: Yes (Hospitalization)
  Sender: FDA-Public Use
  Company Number: CA-PFIZER INC-2020344215

PATIENT
  Age: 42 Year
  Sex: Male
  Weight: 88 kg

DRUGS (5)
  1. CARBOPLATIN. [Suspect]
     Active Substance: CARBOPLATIN
     Indication: ANAL SQUAMOUS CELL CARCINOMA
     Dosage: 900 MG, UNK
     Route: 042
  2. HYDROMORPHONE [Concomitant]
     Active Substance: HYDROMORPHONE
     Dosage: UNK
  3. PREGABALIN. [Concomitant]
     Active Substance: PREGABALIN
     Dosage: UNK
  4. PACLITAXEL. [Suspect]
     Active Substance: PACLITAXEL
     Indication: ANAL SQUAMOUS CELL CARCINOMA
     Dosage: 372 MG, UNK
     Route: 042
  5. SENNA [SENNA ALEXANDRINA] [Concomitant]
     Active Substance: SENNA LEAF
     Dosage: UNK

REACTIONS (7)
  - Hypokalaemia [Unknown]
  - Hypophosphataemia [Unknown]
  - Liver function test increased [Unknown]
  - Off label use [Unknown]
  - Product use in unapproved indication [Unknown]
  - Febrile neutropenia [Unknown]
  - Hypomagnesaemia [Unknown]
